FAERS Safety Report 17886612 (Version 1)
Quarter: 2020Q2

REPORT INFORMATION
  Report Type: Spontaneous
  Country: US (occurrence: US)
  Receive Date: 20200611
  Receipt Date: 20200611
  Transmission Date: 20200714
  Serious: No
  Sender: FDA-Public Use
  Company Number: US-GALDERMA-US2020012095

PATIENT
  Sex: Male

DRUGS (1)
  1. ORACEA [Suspect]
     Active Substance: DOXYCYCLINE
     Indication: ACNE CYSTIC
     Dosage: 40MG
     Route: 048
     Dates: start: 2019, end: 20200301

REACTIONS (3)
  - Intentional product use issue [Recovered/Resolved]
  - Tooth discolouration [Not Recovered/Not Resolved]
  - Skin hyperpigmentation [Not Recovered/Not Resolved]

NARRATIVE: CASE EVENT DATE: 2019
